FAERS Safety Report 23569478 (Version 2)
Quarter: 2024Q1

REPORT INFORMATION
  Report Type: Spontaneous
  Country: JP (occurrence: None)
  Receive Date: 20240227
  Receipt Date: 20240312
  Transmission Date: 20240410
  Serious: Yes (Other)
  Sender: FDA-Public Use
  Company Number: 2024A013134

PATIENT
  Age: 59 Year
  Sex: Female

DRUGS (9)
  1. IMFINZI [Suspect]
     Active Substance: DURVALUMAB
     Indication: Non-small cell lung cancer
     Dosage: 1500.0MG UNKNOWN
     Route: 041
     Dates: start: 20230816, end: 20231212
  2. IMJUDO [Suspect]
     Active Substance: TREMELIMUMAB\TREMELIMUMAB-ACTL
     Indication: Non-small cell lung cancer
     Dosage: 75.0MG UNKNOWN
     Route: 041
     Dates: start: 20230816, end: 20231114
  3. CARBOPLATIN [Concomitant]
     Active Substance: CARBOPLATIN
     Indication: Non-small cell lung cancer
     Dosage: DOSE UNKNOWN
     Dates: start: 20230816, end: 20231114
  4. ABRAXANE [Concomitant]
     Active Substance: PACLITAXEL
     Indication: Non-small cell lung cancer
     Dosage: DOSE UNKNOWN
     Dates: start: 20230816, end: 20231128
  5. URSO [Concomitant]
     Active Substance: URSODIOL
     Indication: Non-small cell lung cancer
     Dosage: DOSE UNKNOWN
  6. SPIRIVA [Concomitant]
     Active Substance: TIOTROPIUM BROMIDE MONOHYDRATE
     Indication: Non-small cell lung cancer
     Dosage: DOSE UNKNOWN
  7. VONOPRAZAN FUMARATE [Concomitant]
     Active Substance: VONOPRAZAN FUMARATE
     Indication: Non-small cell lung cancer
     Dosage: DOSE UNKNOWN
  8. TEPRENONE [Concomitant]
     Active Substance: TEPRENONE
     Indication: Non-small cell lung cancer
     Dosage: DOSE UNKNOWN
  9. BIO-THREE [Concomitant]
     Active Substance: HERBALS
     Indication: Non-small cell lung cancer
     Dosage: DOSE UNKNOWN

REACTIONS (2)
  - Aplasia pure red cell [Not Recovered/Not Resolved]
  - Immune thrombocytopenia [Unknown]

NARRATIVE: CASE EVENT DATE: 20240110
